FAERS Safety Report 4273302-X (Version None)
Quarter: 2004Q1

REPORT INFORMATION
  Report Type: 
  Country: None (occurrence: None)
  Receive Date: 20040114
  Receipt Date: 20040112
  Transmission Date: 20041129
  Serious: Yes (Death)
  Sender: FDA-Public Use
  Company Number: 200410012GDS

PATIENT
  Age: 70 Year
  Sex: Male

DRUGS (5)
  1. GLUCOBAY [Suspect]
     Indication: BLOOD GLUCOSE ABNORMAL
     Dosage: 100 MG, TOTAL DAILY, ORAL
     Route: 048
     Dates: start: 20031211, end: 20031212
  2. SIMVASTATIN [Concomitant]
  3. CLAFORAN [Concomitant]
  4. CEFRADINE [Concomitant]
  5. PLENDIL [Concomitant]

REACTIONS (3)
  - HEPATIC FUNCTION ABNORMAL [None]
  - HEPATIC NEOPLASM MALIGNANT [None]
  - JAUNDICE [None]
